FAERS Safety Report 5015840-8 (Version None)
Quarter: 2006Q2

REPORT INFORMATION
  Report Type: 
  Country: None (occurrence: None)
  Receive Date: 20060531
  Receipt Date: 20060531
  Transmission Date: 20061013
  Serious: Yes (Other)
  Sender: FDA-Public Use
  Company Number: None

PATIENT
  Age: 69 Year
  Sex: Male
  Weight: 101.1521 kg

DRUGS (8)
  1. METOLAZONE [Suspect]
     Dosage: 2.5 MG 3/WEEKLY
     Dates: start: 20060410
  2. LORAZEPAM [Concomitant]
  3. ATORVASTATIN CALCIUM [Concomitant]
  4. FOSINOPRIL SODIUM [Concomitant]
  5. FUROSEMIDE [Concomitant]
  6. METOPROLOL [Concomitant]
  7. WARFARIN [Concomitant]
  8. POTASSIUM CHLORIDE [Concomitant]

REACTIONS (3)
  - CHEST PAIN [None]
  - HYPOKALAEMIA [None]
  - WEIGHT DECREASED [None]
